FAERS Safety Report 8491803-5 (Version None)
Quarter: 2012Q3

REPORT INFORMATION
  Report Type: 
  Country: None (occurrence: None)
  Receive Date: 20120706
  Receipt Date: 20120626
  Transmission Date: 20120928
  Serious: Yes (Hospitalization)
  Sender: FDA-Public Use
  Company Number: FR-SANOFI-AVENTIS-2012SA045434

PATIENT
  Age: 80 Year
  Sex: Male

DRUGS (4)
  1. PENTOXIFYLLINE [Suspect]
     Route: 048
     Dates: start: 20120131, end: 20120227
  2. LASIX [Suspect]
     Route: 048
     Dates: start: 20120131, end: 20120227
  3. DIGOXIN [Suspect]
     Route: 048
     Dates: start: 20120131, end: 20120227
  4. FENOFIBRATE [Suspect]
     Route: 048
     Dates: end: 20120220

REACTIONS (2)
  - TUBULOINTERSTITIAL NEPHRITIS [None]
  - RENAL FAILURE ACUTE [None]
